FAERS Safety Report 25254564 (Version 1)
Quarter: 2025Q2

REPORT INFORMATION
  Report Type: Spontaneous
  Country: CA (occurrence: CA)
  Receive Date: 20250430
  Receipt Date: 20250430
  Transmission Date: 20250717
  Serious: Yes (Other)
  Sender: BAXTER
  Company Number: CA-BAXTER-2025BAX014695

PATIENT
  Age: 58 Year
  Sex: Male

DRUGS (2)
  1. DOXORUBICIN [Suspect]
     Active Substance: DOXORUBICIN
     Indication: Hepatocellular carcinoma
     Route: 065
  2. ASPIRIN [Concomitant]
     Active Substance: ASPIRIN
     Indication: Antiplatelet therapy
     Route: 065

REACTIONS (5)
  - Mitral valve incompetence [Unknown]
  - Cardiotoxicity [Recovering/Resolving]
  - Toxic cardiomyopathy [Recovering/Resolving]
  - Pleural effusion [Unknown]
  - Hypokinesia [Unknown]
